FAERS Safety Report 6854308-0 (Version None)
Quarter: 2010Q3

REPORT INFORMATION
  Report Type: 
  Country: None (occurrence: None)
  Receive Date: 20100717
  Receipt Date: 20080102
  Transmission Date: 20110219
  Serious: No
  Sender: FDA-Public Use
  Company Number: US-PFIZER INC-2008001081

PATIENT
  Sex: Female
  Weight: 61.8 kg

DRUGS (3)
  1. CHANTIX [Suspect]
     Dates: start: 20080101
  2. ALL OTHER THERAPEUTIC PRODUCTS [Concomitant]
  3. VITAMINS [Concomitant]

REACTIONS (2)
  - CONSTIPATION [None]
  - FLATULENCE [None]
